FAERS Safety Report 7830053-X (Version None)
Quarter: 2011Q4

REPORT INFORMATION
  Report Type: 
  Country: None (occurrence: None)
  Receive Date: 20111021
  Receipt Date: 20111013
  Transmission Date: 20120403
  Serious: Yes (Other)
  Sender: FDA-Public Use
  Company Number: US-ASTELLAS-2011US005845

PATIENT
  Age: 38 Year
  Sex: Female

DRUGS (1)
  1. VIBATIV [Suspect]
     Indication: POST PROCEDURAL INFECTION
     Dosage: UNK
     Route: 042
     Dates: start: 20110901, end: 20110901

REACTIONS (1)
  - MUSCLE SPASMS [None]
